FAERS Safety Report 9340929 (Version 4)
Quarter: 2014Q4

REPORT INFORMATION
  Report Type: Spontaneous
  Country: AU (occurrence: None)
  Receive Date: 20130530
  Receipt Date: 20141106
  Transmission Date: 20150529
  Serious: Yes (Other)
  Sender: FDA-Public Use
  Company Number: GAM-144-13-AU

PATIENT
  Age: 30 Year
  Sex: Female

DRUGS (1)
  1. OCTAGAM IMMUNE GLOBULIN (HUMAN) [Suspect]
     Active Substance: HUMAN IMMUNOGLOBULIN G
     Indication: CHRONIC INFLAMMATORY DEMYELINATING POLYRADICULONEUROPATHY
     Dosage: 60 G (1X WEEKS) INTRAVENOUS (NOT OTHERWISE SPECIFIED)??
     Route: 042
     Dates: start: 20130905, end: 20130905

REACTIONS (9)
  - Pyrexia [None]
  - Fatigue [None]
  - Lethargy [None]
  - Asthenia [None]
  - Anaemia [None]
  - Haemolysis [None]
  - Nausea [None]
  - Vomiting [None]
  - Haematuria [None]

NARRATIVE: CASE EVENT DATE: 20130509
